FAERS Safety Report 21312471 (Version 1)
Quarter: 2022Q3

REPORT INFORMATION
  Report Type: Spontaneous
  Country: US (occurrence: None)
  Receive Date: 20220909
  Receipt Date: 20220909
  Transmission Date: 20221026
  Serious: No
  Sender: FDA-Public Use
  Company Number: US-ARIS GLOBAL-202206-1173

PATIENT
  Age: 64 Year
  Sex: Female

DRUGS (15)
  1. OXERVATE [Suspect]
     Active Substance: CENEGERMIN-BKBJ
     Indication: Neurotrophic keratopathy
     Route: 047
     Dates: start: 20220621
  2. SYSTANE COMPLETE [Concomitant]
     Active Substance: PROPYLENE GLYCOL
  3. BIOTIN [Concomitant]
     Active Substance: BIOTIN
  4. MAGNESIUM [Concomitant]
     Active Substance: MAGNESIUM
  5. THIAMINE HYDROCHLORIDE [Concomitant]
     Active Substance: THIAMINE HYDROCHLORIDE
  6. VITAMIN D3 [Concomitant]
     Active Substance: CHOLECALCIFEROL
  7. VITAMIN C [Concomitant]
     Active Substance: ASCORBIC ACID
  8. ZINC-15 [Concomitant]
  9. OTEZLA [Concomitant]
     Active Substance: APREMILAST
  10. VASCEPA [Concomitant]
     Active Substance: ICOSAPENT ETHYL
  11. TRADJENTA [Concomitant]
     Active Substance: LINAGLIPTIN
  12. JARDIANCE [Concomitant]
     Active Substance: EMPAGLIFLOZIN
  13. ROSUVASTATIN CALCIUM [Concomitant]
     Active Substance: ROSUVASTATIN CALCIUM
  14. BISOPROLOL FUMARATE\HYDROCHLOROTHIAZIDE [Concomitant]
     Active Substance: BISOPROLOL FUMARATE\HYDROCHLOROTHIAZIDE
  15. FENOFIBRATE [Concomitant]
     Active Substance: FENOFIBRATE

REACTIONS (4)
  - Periorbital pain [Not Recovered/Not Resolved]
  - Eye pain [Not Recovered/Not Resolved]
  - Ocular hyperaemia [Not Recovered/Not Resolved]
  - Lacrimation increased [Not Recovered/Not Resolved]

NARRATIVE: CASE EVENT DATE: 20220621
